FAERS Safety Report 14761664 (Version 1)
Quarter: 2018Q2

REPORT INFORMATION
  Report Type: Spontaneous
  Country: US (occurrence: US)
  Receive Date: 20180416
  Receipt Date: 20180416
  Transmission Date: 20180711
  Serious: No
  Sender: FDA-Public Use
  Company Number: US-BION-006276

PATIENT
  Age: 41 Year
  Sex: Female
  Weight: 81.65 kg

DRUGS (1)
  1. ALEVE [Suspect]
     Active Substance: NAPROXEN SODIUM
     Indication: PAIN
     Dosage: TABLET/CAPLET/GELCAP
     Route: 048
     Dates: start: 20170401

REACTIONS (2)
  - Drug effect incomplete [Not Recovered/Not Resolved]
  - Product substitution issue [Unknown]
